FAERS Safety Report 15731581 (Version 6)
Quarter: 2023Q4

REPORT INFORMATION
  Report Type: Report from Study
  Country: US (occurrence: US)
  Receive Date: 20181217
  Receipt Date: 20231019
  Transmission Date: 20240110
  Serious: Yes (Other)
  Sender: FDA-Public Use
  Company Number: US-JAZZ-2018-US-018095

PATIENT
  Age: 66 Year
  Sex: Male
  Weight: 99.7 kg

DRUGS (36)
  1. XYREM [Suspect]
     Active Substance: SODIUM OXYBATE
     Indication: Narcolepsy
     Dosage: 3 GRAM, BID
     Route: 048
     Dates: start: 201306, end: 201308
  2. XYREM [Suspect]
     Active Substance: SODIUM OXYBATE
     Indication: Cataplexy
     Dosage: 4.5 GRAM, BID
     Route: 048
     Dates: start: 201308
  3. XYREM [Suspect]
     Active Substance: SODIUM OXYBATE
     Indication: Somnolence
  4. LACTASE [Concomitant]
     Active Substance: LACTASE
     Indication: Product used for unknown indication
     Dosage: UNK
     Dates: start: 201511
  5. ADVAIR HFA [Concomitant]
     Active Substance: FLUTICASONE PROPIONATE\SALMETEROL XINAFOATE
     Indication: Product used for unknown indication
     Dosage: UNK
     Dates: start: 201511
  6. ASPIRIN [Concomitant]
     Active Substance: ASPIRIN
     Indication: Product used for unknown indication
     Dosage: UNK
     Dates: start: 201511
  7. CHLORDIAZEPOXIDE\CLIDINIUM [Concomitant]
     Active Substance: CHLORDIAZEPOXIDE\CLIDINIUM
     Indication: Product used for unknown indication
     Dosage: UNK
     Dates: start: 201511
  8. CLONAZEPAM [Concomitant]
     Active Substance: CLONAZEPAM
     Indication: Product used for unknown indication
     Dosage: UNK
     Dates: start: 201511
  9. COMBIVENT [Concomitant]
     Active Substance: ALBUTEROL SULFATE\IPRATROPIUM BROMIDE
     Indication: Product used for unknown indication
     Dosage: UNK
     Dates: start: 201511
  10. CYCLOBENZAPRINE [Concomitant]
     Active Substance: CYCLOBENZAPRINE
     Indication: Product used for unknown indication
     Dosage: UNK
     Dates: start: 201511
  11. DEXILANT [Concomitant]
     Active Substance: DEXLANSOPRAZOLE
     Indication: Product used for unknown indication
     Dosage: UNK
     Dates: start: 201511
  12. DULOXETINE HYDROCHLORIDE [Concomitant]
     Active Substance: DULOXETINE HYDROCHLORIDE
     Indication: Product used for unknown indication
     Dosage: UNK
     Dates: start: 201511
  13. EPINEPHRINE [Concomitant]
     Active Substance: EPINEPHRINE
     Indication: Product used for unknown indication
     Dosage: UNK
     Dates: start: 201511
  14. FLOMAX [Concomitant]
     Active Substance: TAMSULOSIN HYDROCHLORIDE
     Indication: Product used for unknown indication
     Dosage: UNK
     Dates: start: 201511
  15. IPRATROPIUM [Concomitant]
     Active Substance: IPRATROPIUM
     Indication: Product used for unknown indication
     Dosage: UNK
     Dates: start: 201511
  16. METHYLPHENIDATE [Concomitant]
     Active Substance: METHYLPHENIDATE
     Indication: Product used for unknown indication
     Dosage: UNK
     Dates: start: 201511
  17. PATADAY [Concomitant]
     Active Substance: OLOPATADINE HYDROCHLORIDE
     Indication: Product used for unknown indication
     Dosage: UNK
     Dates: start: 201511
  18. PATANASE [Concomitant]
     Active Substance: OLOPATADINE HYDROCHLORIDE
     Indication: Product used for unknown indication
     Dosage: UNK
     Dates: start: 201511
  19. SINGULAIR [Concomitant]
     Active Substance: MONTELUKAST SODIUM
     Indication: Product used for unknown indication
     Dosage: UNK
     Dates: start: 201511
  20. VIAGRA [Concomitant]
     Active Substance: SILDENAFIL CITRATE
     Indication: Product used for unknown indication
     Dosage: UNK
     Dates: start: 201511
  21. VITAMIN D2 [Concomitant]
     Active Substance: ERGOCALCIFEROL
     Indication: Product used for unknown indication
     Dosage: UNK
     Dates: start: 201511
  22. WARFARIN SODIUM [Concomitant]
     Active Substance: WARFARIN SODIUM
     Indication: Product used for unknown indication
     Dosage: UNK
     Dates: start: 201511
  23. PAROXETINE HYDROCHLORIDE [Concomitant]
     Active Substance: PAROXETINE HYDROCHLORIDE
     Indication: Product used for unknown indication
     Dosage: UNK
     Dates: start: 201505
  24. FLEXERIL [Concomitant]
     Active Substance: CYCLOBENZAPRINE HYDROCHLORIDE
     Indication: Product used for unknown indication
     Dosage: UNK
     Dates: start: 201504
  25. CETIRIZINE HCL [Concomitant]
     Active Substance: CETIRIZINE HYDROCHLORIDE
     Indication: Product used for unknown indication
     Dosage: UNK
     Dates: start: 201304
  26. TIZANIDINE HYDROCHLORIDE [Concomitant]
     Active Substance: TIZANIDINE HYDROCHLORIDE
     Indication: Product used for unknown indication
     Dosage: UNK
     Dates: start: 201205
  27. FLUDROCORTISONE [Concomitant]
     Active Substance: FLUDROCORTISONE
     Indication: Product used for unknown indication
     Dosage: UNK
     Dates: start: 201105
  28. MORPHINE SULFATE [Concomitant]
     Active Substance: MORPHINE SULFATE
     Indication: Product used for unknown indication
     Dosage: UNK
     Dates: start: 200905
  29. OXYCODONE AND ACETAMINOPHEN [Concomitant]
     Active Substance: ACETAMINOPHEN\OXYCODONE HYDROCHLORIDE
     Indication: Product used for unknown indication
     Dosage: UNK
     Dates: start: 200905
  30. SERTRALINE HYDROCHLORIDE [Concomitant]
     Active Substance: SERTRALINE HYDROCHLORIDE
     Indication: Product used for unknown indication
     Dosage: UNK
     Dates: start: 200905
  31. FLUTICASONE PROPIONATE [Concomitant]
     Active Substance: FLUTICASONE PROPIONATE
     Indication: Product used for unknown indication
     Dosage: UNK
     Dates: start: 200705
  32. QVAR [Concomitant]
     Active Substance: BECLOMETHASONE DIPROPIONATE
     Indication: Product used for unknown indication
     Dosage: UNK
     Dates: start: 200505
  33. ZYRTEC [Concomitant]
     Active Substance: CETIRIZINE HYDROCHLORIDE
     Indication: Product used for unknown indication
     Dosage: 10 MILLIGRAM
     Route: 048
  34. FINASTERIDE [Concomitant]
     Active Substance: FINASTERIDE
     Indication: Product used for unknown indication
     Dosage: 5 MILLIGRAM
     Route: 048
  35. ATORVASTATIN [Concomitant]
     Active Substance: ATORVASTATIN
     Indication: Product used for unknown indication
     Dosage: 20 MILLIGRAM
     Route: 048
  36. OMEPRAZOLE [Concomitant]
     Active Substance: OMEPRAZOLE
     Indication: Product used for unknown indication
     Dosage: 20 MILLIGRAM
     Route: 048

REACTIONS (15)
  - Benign prostatic hyperplasia [Recovered/Resolved]
  - Spinal nerve stimulator implantation [Unknown]
  - Atrial fibrillation [Recovering/Resolving]
  - Drug hypersensitivity [Unknown]
  - Pruritus [Unknown]
  - Osteoarthritis [Not Recovered/Not Resolved]
  - Intervertebral disc degeneration [Not Recovered/Not Resolved]
  - Asthma [Unknown]
  - Infection [Unknown]
  - Back pain [Not Recovered/Not Resolved]
  - Blood pressure increased [Recovered/Resolved]
  - Hypersensitivity [Unknown]
  - Pre-existing condition improved [Unknown]
  - Anxiety [Unknown]
  - Nerve injury [Unknown]

NARRATIVE: CASE EVENT DATE: 20170601
